FAERS Safety Report 5369261-9 (Version None)
Quarter: 2007Q2

REPORT INFORMATION
  Report Type: 
  Country: None (occurrence: None)
  Receive Date: 20070621
  Receipt Date: 20070621
  Transmission Date: 20071010
  Serious: Yes (Life-Threatening, Hospitalization)
  Sender: FDA-Public Use
  Company Number: None

PATIENT
  Age: 38 Year
  Sex: Female

DRUGS (7)
  1. ENBREL [Suspect]
  2. PLAQUENIL [Concomitant]
  3. AMBIEN [Concomitant]
  4. SYNTHROID [Concomitant]
  5. LITHIUM [Concomitant]
  6. DEPAKOTE [Concomitant]
  7. COGENTIN [Concomitant]

REACTIONS (23)
  - ACUTE SINUSITIS [None]
  - ASTHENIA [None]
  - BIPOLAR DISORDER [None]
  - BLOOD GLUCOSE DECREASED [None]
  - CONDITION AGGRAVATED [None]
  - CONFUSIONAL STATE [None]
  - DELIRIUM [None]
  - DISSEMINATED INTRAVASCULAR COAGULATION [None]
  - DRUG TOXICITY [None]
  - DYSTONIA [None]
  - GENERAL PHYSICAL HEALTH DETERIORATION [None]
  - HAEMODIALYSIS [None]
  - HEPATIC ENZYME INCREASED [None]
  - MENINGITIS [None]
  - ORAL CANDIDIASIS [None]
  - PERONEAL NERVE PALSY [None]
  - PSYCHOTIC DISORDER [None]
  - RENAL FAILURE ACUTE [None]
  - RESPIRATORY FAILURE [None]
  - SEPSIS [None]
  - SKIN EXFOLIATION [None]
  - THERAPEUTIC AGENT TOXICITY [None]
  - TOXIC SHOCK SYNDROME [None]
